FAERS Safety Report 5219565-5 (Version None)
Quarter: 2007Q1

REPORT INFORMATION
  Report Type: 
  Country: None (occurrence: None)
  Receive Date: 20070125
  Receipt Date: 20070111
  Transmission Date: 20070707
  Serious: Yes (Other)
  Sender: FDA-Public Use
  Company Number: ES-ELI_LILLY_AND_COMPANY-ES200701003709

PATIENT
  Age: 52 Year
  Sex: Female

DRUGS (8)
  1. OLANZAPINE [Suspect]
     Indication: MAJOR DEPRESSION
     Dosage: 10 MG, UNK
  2. OLANZAPINE [Suspect]
     Dosage: 15 MG, UNK
  3. OLANZAPINE [Suspect]
     Dosage: 20 MG, UNK
  4. CLORAZEPATE [Concomitant]
     Dosage: 150 MG, UNK
  5. LORMETAZEPAM [Concomitant]
     Dosage: 2 MEQ, UNK
  6. MIRTAZAPINE [Concomitant]
     Dosage: 30 MG, UNK
  7. BIPERIDEN HYDROCHLORIDE TAB [Concomitant]
     Dosage: 4 MG, UNK
  8. LITHIUM CARBONATE [Concomitant]
     Dosage: 600 MG, UNK

REACTIONS (4)
  - ABNORMAL BEHAVIOUR [None]
  - AGITATION [None]
  - PARKINSONISM [None]
  - POSTURE ABNORMAL [None]
